FAERS Safety Report 9454301 (Version 2)
Quarter: 2013Q4

REPORT INFORMATION
  Report Type: Report from Study
  Country: BR (occurrence: BR)
  Receive Date: 20130812
  Receipt Date: 20131003
  Transmission Date: 20140711
  Serious: Yes (Other)
  Sender: FDA-Public Use
  Company Number: BR-US-EMD SERONO, INC.-7227930

PATIENT
  Sex: Female

DRUGS (4)
  1. REBIF [Suspect]
     Indication: RELAPSING-REMITTING MULTIPLE SCLEROSIS
  2. BETAHISTINE DIHYDROCHLORIDE [Concomitant]
     Indication: LABYRINTHITIS
  3. OMEPRAZOLE [Concomitant]
     Indication: ABDOMINAL DISCOMFORT
  4. AMYTRIL [Concomitant]
     Indication: ANTIDEPRESSANT THERAPY

REACTIONS (1)
  - Syphilis [Unknown]
